FAERS Safety Report 7878084-8 (Version None)
Quarter: 2011Q4

REPORT INFORMATION
  Report Type: 
  Country: None (occurrence: None)
  Receive Date: 20111101
  Receipt Date: 20111021
  Transmission Date: 20120403
  Serious: No
  Sender: FDA-Public Use
  Company Number: US-BIOGENIDEC-2011BI014675

PATIENT
  Age: 50 Year
  Sex: Female

DRUGS (1)
  1. TYSABRI [Suspect]
     Indication: MULTIPLE SCLEROSIS
     Route: 042
     Dates: start: 20100226

REACTIONS (27)
  - PAIN IN EXTREMITY [None]
  - HEADACHE [None]
  - URINARY TRACT INFECTION [None]
  - DEPRESSION [None]
  - ARTHRALGIA [None]
  - ASTHENIA [None]
  - SLEEP DISORDER [None]
  - GASTRIC DISORDER [None]
  - PSORIASIS [None]
  - NAUSEA [None]
  - CHILLS [None]
  - HOT FLUSH [None]
  - PAIN [None]
  - YELLOW SKIN [None]
  - WHEEZING [None]
  - ABDOMINAL PAIN [None]
  - HYPOAESTHESIA [None]
  - MUSCULOSKELETAL DISORDER [None]
  - GASTROINTESTINAL DISORDER [None]
  - DYSPNOEA [None]
  - DIARRHOEA [None]
  - WEIGHT INCREASED [None]
  - ANXIETY [None]
  - HYPERHIDROSIS [None]
  - BLADDER DISORDER [None]
  - CREPITATIONS [None]
  - CLAUSTROPHOBIA [None]
